FAERS Safety Report 15491395 (Version 1)
Quarter: 2018Q4

REPORT INFORMATION
  Report Type: Report from Study
  Country: US (occurrence: US)
  Receive Date: 20181012
  Receipt Date: 20181012
  Transmission Date: 20190205
  Serious: Yes (Hospitalization)
  Sender: FDA-Public Use
  Company Number: US-BRISTOL-MYERS SQUIBB COMPANY-BMS-2018-093423

PATIENT
  Age: 66 Year
  Sex: Female
  Weight: 74.2 kg

DRUGS (2)
  1. IPILIMUMAB [Suspect]
     Active Substance: IPILIMUMAB
     Indication: ENDOMETRIAL SARCOMA
     Dosage: 1 MG/KG, ON DAY 1
     Route: 042
     Dates: start: 20180426
  2. NIVOLUMAB [Suspect]
     Active Substance: NIVOLUMAB
     Indication: ENDOMETRIAL SARCOMA
     Dosage: 240 MG, ON DAYS 1, 15, AND 29
     Route: 042
     Dates: start: 20180426

REACTIONS (2)
  - Mental status changes [Recovering/Resolving]
  - Dysphagia [Recovering/Resolving]

NARRATIVE: CASE EVENT DATE: 20180921
